FAERS Safety Report 11298444 (Version 1)
Quarter: 2015Q3

REPORT INFORMATION
  Report Type: Spontaneous
  Country: US (occurrence: US)
  Receive Date: 20150722
  Receipt Date: 20150722
  Transmission Date: 20151125
  Serious: Yes (Hospitalization)
  Sender: FDA-Public Use
  Company Number: US-ELI_LILLY_AND_COMPANY-US201110006579

PATIENT
  Age: 66 Year
  Sex: Male
  Weight: 95 kg

DRUGS (8)
  1. TRITACE [Concomitant]
     Active Substance: RAMIPRIL
     Dosage: UNK, UNKNOWN
     Dates: start: 201001
  2. MILURIT [Concomitant]
     Active Substance: ALLOPURINOL
     Dosage: UNK, UNKNOWN
     Dates: start: 20080401
  3. EFFIENT [Suspect]
     Active Substance: PRASUGREL HYDROCHLORIDE
     Indication: MYOCARDIAL INFARCTION
     Dosage: 10 MG, QD
     Dates: start: 20110404, end: 20110822
  4. SIOFOR [Concomitant]
     Active Substance: METFORMIN HYDROCHLORIDE
     Dosage: UNK, UNKNOWN
     Dates: start: 200901
  5. EPLERENONE. [Concomitant]
     Active Substance: EPLERENONE
     Indication: MYOCARDIAL INFARCTION
     Dosage: 50 MG, QD
     Route: 048
     Dates: start: 20110328, end: 20110822
  6. SORTIS [Concomitant]
     Active Substance: ATORVASTATIN
     Dosage: UNK
     Dates: start: 20110328
  7. GLIMEPIRIDE. [Concomitant]
     Active Substance: GLIMEPIRIDE
     Dosage: UNK, UNKNOWN
     Dates: start: 200909
  8. ANOPYRIN [Concomitant]
     Active Substance: ASPIRIN
     Indication: MYOCARDIAL INFARCTION
     Dosage: UNK, UNKNOWN
     Route: 048
     Dates: start: 20110328, end: 20110822

REACTIONS (1)
  - Epistaxis [Recovered/Resolved]

NARRATIVE: CASE EVENT DATE: 20110822
